FAERS Safety Report 6356654-6 (Version None)
Quarter: 2009Q3

REPORT INFORMATION
  Report Type: 
  Country: None (occurrence: None)
  Receive Date: 20090915
  Receipt Date: 20090904
  Transmission Date: 20100115
  Serious: Yes (Other)
  Sender: FDA-Public Use
  Company Number: BR-JNJFOC-20090902535

PATIENT
  Age: 28 Year
  Sex: Male

DRUGS (1)
  1. INVEGA [Suspect]
     Indication: SCHIZOPHRENIA
     Route: 048
     Dates: start: 20090101

REACTIONS (2)
  - CORONARY ARTERY INSUFFICIENCY [None]
  - PARAESTHESIA [None]
